FAERS Safety Report 9477975 (Version 1)
Quarter: 2013Q3

REPORT INFORMATION
  Report Type: Spontaneous
  Country: US (occurrence: None)
  Receive Date: 20130826
  Receipt Date: 20130826
  Transmission Date: 20140515
  Serious: No
  Sender: FDA-Public Use
  Company Number: None

PATIENT
  Age: 72 Year
  Sex: Female

DRUGS (3)
  1. BOTOX [Suspect]
     Indication: PRODUCT USED FOR UNKNOWN INDICATION
     Dosage: TO BE ADMINISTERED BY PHYSICIAN INJECT EVERY 3-4 MONTHS
  2. VALIUM TAB [Concomitant]
  3. MOTRIN IB TAB [Concomitant]

REACTIONS (1)
  - Unevaluable event [None]
